FAERS Safety Report 11358804 (Version 1)
Quarter: 2015Q3

REPORT INFORMATION
  Report Type: Spontaneous
  Country: US (occurrence: None)
  Receive Date: 20150807
  Receipt Date: 20150807
  Transmission Date: 20151125
  Serious: No
  Sender: FDA-Public Use
  Company Number: None

PATIENT
  Age: 54 Year
  Sex: Female
  Weight: 99.79 kg

DRUGS (8)
  1. VENTOLIN [Concomitant]
     Active Substance: ALBUTEROL SULFATE
  2. BIOTIN [Concomitant]
     Active Substance: BIOTIN
  3. HYDROXYCHLOROQUINE 200 MG [Suspect]
     Active Substance: HYDROXYCHLOROQUINE
     Indication: LUPUS-LIKE SYNDROME
     Dosage: 2 PILLS
     Route: 048
     Dates: start: 2012, end: 2015
  4. VIT. D [Concomitant]
  5. PLAQUENIL [Concomitant]
     Active Substance: HYDROXYCHLOROQUINE SULFATE
  6. B12 COMPLEX [Concomitant]
  7. HYDROXYCHLOROQUINE 200 MG [Suspect]
     Active Substance: HYDROXYCHLOROQUINE
     Indication: CONNECTIVE TISSUE DISORDER
     Dosage: 2 PILLS
     Route: 048
     Dates: start: 2012, end: 2015
  8. CYMBALTA [Concomitant]
     Active Substance: DULOXETINE HYDROCHLORIDE

REACTIONS (12)
  - Myalgia [None]
  - Gait disturbance [None]
  - Product substitution issue [None]
  - Pain [None]
  - Muscle spasms [None]
  - Laryngeal inflammation [None]
  - Anaemia [None]
  - Mouth ulceration [None]
  - Alopecia [None]
  - Vision blurred [None]
  - Dyskinesia [None]
  - Drug effect decreased [None]

NARRATIVE: CASE EVENT DATE: 20150401
